FAERS Safety Report 25711909 (Version 1)
Quarter: 2025Q3

REPORT INFORMATION
  Report Type: Spontaneous
  Country: US (occurrence: US)
  Receive Date: 20250821
  Receipt Date: 20250821
  Transmission Date: 20251020
  Serious: Yes (Hospitalization)
  Sender: VERONA PHARMA
  Company Number: US-VERONA PHARMA-VER-007435

PATIENT
  Sex: Female

DRUGS (1)
  1. OHTUVAYRE [Suspect]
     Active Substance: ENSIFENTRINE
     Indication: Product used for unknown indication
     Dosage: 3 MILLIGRAM, BID
     Dates: start: 20250516

REACTIONS (2)
  - Chronic obstructive pulmonary disease [Unknown]
  - Rehabilitation therapy [Unknown]
